FAERS Safety Report 8451370-9 (Version None)
Quarter: 2012Q2

REPORT INFORMATION
  Report Type: 
  Country: None (occurrence: None)
  Receive Date: 20120620
  Receipt Date: 20120226
  Transmission Date: 20120825
  Serious: No
  Sender: FDA-Public Use
  Company Number: US-VERTEX PHARMACEUTICALS INC.-AE-2012-002805

PATIENT
  Sex: Female
  Weight: 101.24 kg

DRUGS (9)
  1. PEGINTERFERON ALFA-2A [Concomitant]
     Indication: HEPATITIS C
     Route: 058
     Dates: start: 20120115
  2. PRILOSEC [Concomitant]
  3. INCIVEK [Suspect]
     Indication: HEPATITIS C
     Route: 048
     Dates: start: 20120115
  4. HYDROCHLOROTHIAZIDE [Concomitant]
     Indication: BLOOD PRESSURE
  5. LUNESTA [Concomitant]
     Route: 048
  6. WELLBUTRIN [Concomitant]
     Indication: DEPRESSION
  7. ZESTRIL [Concomitant]
     Indication: BLOOD PRESSURE
  8. RIBAVIRIN [Concomitant]
     Indication: HEPATITIS C
     Route: 048
     Dates: start: 20120115, end: 20120218
  9. RIBAVIRIN [Concomitant]
     Route: 048
     Dates: start: 20120219

REACTIONS (4)
  - ANAEMIA [None]
  - MUSCLE SPASMS [None]
  - FATIGUE [None]
  - GAIT DISTURBANCE [None]
